FAERS Safety Report 7608345-9 (Version None)
Quarter: 2011Q3

REPORT INFORMATION
  Report Type: 
  Country: None (occurrence: None)
  Receive Date: 20110714
  Receipt Date: 20110705
  Transmission Date: 20111222
  Serious: Yes (Hospitalization)
  Sender: FDA-Public Use
  Company Number: CA-ASTRAZENECA-2011SE40809

PATIENT
  Age: 66 Year
  Sex: Male

DRUGS (4)
  1. SYNTHROID [Concomitant]
     Route: 048
  2. PERINDOPRIL ERBUMINE [Concomitant]
     Route: 048
  3. METFORMIN HCL [Concomitant]
     Route: 048
  4. CRESTOR [Suspect]
     Route: 048
     Dates: start: 20090101

REACTIONS (5)
  - BLOOD POTASSIUM DECREASED [None]
  - SYNCOPE [None]
  - HYPERTENSION [None]
  - MALAISE [None]
  - ASTHENIA [None]
